FAERS Safety Report 8415379-3 (Version None)
Quarter: 2012Q2

REPORT INFORMATION
  Report Type: 
  Country: None (occurrence: None)
  Receive Date: 20120606
  Receipt Date: 20120531
  Transmission Date: 20120825
  Serious: Yes (Other)
  Sender: FDA-Public Use
  Company Number: PHHY2012MX047302

PATIENT
  Sex: Male

DRUGS (2)
  1. SERECEK [Concomitant]
     Indication: ANXIETY
     Dosage: 1 DF, QD
  2. TEGRETOL-XR [Suspect]
     Indication: EPILEPSY
     Dosage: 400 MG, 2 TABLETS QD
     Route: 048
     Dates: start: 20100501

REACTIONS (1)
  - BRAIN NEOPLASM [None]
